FAERS Safety Report 20333322 (Version 1)
Quarter: 2022Q1

REPORT INFORMATION
  Report Type: Spontaneous
  Country: ES (occurrence: ES)
  Receive Date: 20220113
  Receipt Date: 20220113
  Transmission Date: 20220423
  Serious: Yes (Other)
  Sender: FDA-Public Use
  Company Number: None

PATIENT
  Age: 37 Year
  Sex: Female

DRUGS (1)
  1. LEVOTHYROXINE SODIUM [Suspect]
     Active Substance: LEVOTHYROXINE SODIUM
     Indication: Autoimmune thyroiditis
     Dosage: AS PATIENT HAD BEEN USING IT FOR 18 YEARS. BUT WITH THE NEW FORMULA SHE WAS GETTING WORSE EVERY TIME
     Route: 048
     Dates: start: 2003

REACTIONS (10)
  - Inflammation [Not Recovered/Not Resolved]
  - Fatigue [Not Recovered/Not Resolved]
  - Bradycardia [Not Recovered/Not Resolved]
  - Constipation [Not Recovered/Not Resolved]
  - Dyspepsia [Not Recovered/Not Resolved]
  - Pain [Not Recovered/Not Resolved]
  - Myalgia [Not Recovered/Not Resolved]
  - Night sweats [Not Recovered/Not Resolved]
  - Tachycardia [Not Recovered/Not Resolved]
  - Insomnia [Not Recovered/Not Resolved]

NARRATIVE: CASE EVENT DATE: 20210101
